FAERS Safety Report 8083648-5 (Version None)
Quarter: 2012Q1

REPORT INFORMATION
  Report Type: 
  Country: None (occurrence: None)
  Receive Date: 20120127
  Receipt Date: 20110110
  Transmission Date: 20120608
  Serious: No
  Sender: FDA-Public Use
  Company Number: US-ABBOTT-11P-163-0696713-00

PATIENT
  Sex: Female
  Weight: 59.474 kg

DRUGS (4)
  1. HUMIRA [Suspect]
     Indication: CROHN'S DISEASE
     Dates: start: 20070101
  2. CLOBETASOL PROPIONATE [Concomitant]
     Indication: DRY SKIN
  3. IMITREX [Concomitant]
     Indication: MIGRAINE
  4. DEPO-PROVERA [Concomitant]
     Indication: CONTRACEPTION

REACTIONS (11)
  - SINUS CONGESTION [None]
  - HAEMOPTYSIS [None]
  - CROHN'S DISEASE [None]
  - SINUSITIS [None]
  - DRUG PRESCRIBING ERROR [None]
  - PRURITUS [None]
  - RASH PRURITIC [None]
  - SINUS HEADACHE [None]
  - BLISTER [None]
  - SINUS DISORDER [None]
  - RHINORRHOEA [None]
